FAERS Safety Report 20722614 (Version 4)
Quarter: 2025Q4

REPORT INFORMATION
  Report Type: Report from Study
  Country: JP (occurrence: JP)
  Receive Date: 20220419
  Receipt Date: 20251218
  Transmission Date: 20260117
  Serious: Yes (Life-Threatening, Hospitalization, Disabling, Other)
  Sender: ROCHE
  Company Number: JP-CHUGAI-2022014072

PATIENT
  Age: 66 Year
  Sex: Male
  Weight: 52.00 kg

DRUGS (33)
  1. HEMLIBRA [Suspect]
     Active Substance: EMICIZUMAB-KXWH
     Indication: Haemophilia A with anti factor VIII
     Route: 058
  2. HEMLIBRA [Suspect]
     Active Substance: EMICIZUMAB-KXWH
     Route: 058
  3. BYCLOT [Suspect]
     Active Substance: COAGULATION FACTOR VII HUMAN\COAGULATION FACTOR X HUMAN
     Indication: Haemostasis
     Dosage: 4.5 MILLIGRAM, SINGLE
     Route: 041
  4. BYCLOT [Suspect]
     Active Substance: COAGULATION FACTOR VII HUMAN\COAGULATION FACTOR X HUMAN
     Dosage: 3 MILLIGRAM, SINGLE
     Route: 041
  5. BYCLOT [Suspect]
     Active Substance: COAGULATION FACTOR VII HUMAN\COAGULATION FACTOR X HUMAN
     Dosage: 3 MILLIGRAM, SINGLE
     Route: 041
  6. BYCLOT [Suspect]
     Active Substance: COAGULATION FACTOR VII HUMAN\COAGULATION FACTOR X HUMAN
     Dosage: 3 MILLIGRAM, SINGLE
     Route: 041
  7. BYCLOT [Suspect]
     Active Substance: COAGULATION FACTOR VII HUMAN\COAGULATION FACTOR X HUMAN
     Dosage: 3 MILLIGRAM, SINGLE
     Route: 041
  8. BYCLOT [Suspect]
     Active Substance: COAGULATION FACTOR VII HUMAN\COAGULATION FACTOR X HUMAN
     Dosage: 3 MILLIGRAM, SINGLE
     Route: 041
  9. BYCLOT [Suspect]
     Active Substance: COAGULATION FACTOR VII HUMAN\COAGULATION FACTOR X HUMAN
     Dosage: 3 MILLIGRAM, SINGLE
     Route: 041
  10. BYCLOT [Suspect]
     Active Substance: COAGULATION FACTOR VII HUMAN\COAGULATION FACTOR X HUMAN
     Dosage: 3 MILLIGRAM, SINGLE
     Route: 041
  11. PRECEDEX [Suspect]
     Active Substance: DEXMEDETOMIDINE HYDROCHLORIDE
     Indication: Product used for unknown indication
     Dosage: UNK
  12. NOVOSEVEN [Suspect]
     Active Substance: COAGULATION FACTOR VIIA RECOMBINANT HUMAN
     Indication: Haemostasis
     Dosage: 5 MILLIGRAM
     Route: 041
  13. NOVOSEVEN [Suspect]
     Active Substance: COAGULATION FACTOR VIIA RECOMBINANT HUMAN
     Dosage: 5 MILLIGRAM
     Route: 041
  14. NOVOSEVEN [Suspect]
     Active Substance: COAGULATION FACTOR VIIA RECOMBINANT HUMAN
     Dosage: 5 MILLIGRAM
     Route: 041
  15. NOVOSEVEN [Suspect]
     Active Substance: COAGULATION FACTOR VIIA RECOMBINANT HUMAN
     Dosage: 5 MILLIGRAM
     Route: 041
  16. NOVOSEVEN [Suspect]
     Active Substance: COAGULATION FACTOR VIIA RECOMBINANT HUMAN
     Dosage: 5 MILLIGRAM
     Route: 041
  17. NOVOSEVEN [Suspect]
     Active Substance: COAGULATION FACTOR VIIA RECOMBINANT HUMAN
     Dosage: 5 MILLIGRAM
     Route: 041
  18. NOVOSEVEN [Suspect]
     Active Substance: COAGULATION FACTOR VIIA RECOMBINANT HUMAN
     Dosage: 3.8 MILLIGRAM
     Route: 041
  19. NOVOSEVEN [Suspect]
     Active Substance: COAGULATION FACTOR VIIA RECOMBINANT HUMAN
     Dosage: 3.8 MILLIGRAM
     Route: 041
  20. NOVOSEVEN [Suspect]
     Active Substance: COAGULATION FACTOR VIIA RECOMBINANT HUMAN
     Dosage: 3.8 MILLIGRAM
     Route: 041
  21. VOGLIBOSE [Concomitant]
     Active Substance: VOGLIBOSE
     Indication: Diabetes mellitus
     Dosage: 0.3MG/DAY
     Route: 048
  22. TRESIBA [Concomitant]
     Active Substance: INSULIN DEGLUDEC
     Indication: Diabetes mellitus
     Dosage: UNK
  23. VICTOZA [Concomitant]
     Active Substance: LIRAGLUTIDE
     Indication: Diabetes mellitus
     Dosage: UNK
     Route: 058
  24. NOVORAPID [Concomitant]
     Active Substance: INSULIN ASPART
     Indication: Diabetes mellitus
     Dosage: UNK
  25. LEVETIRACETAM [Concomitant]
     Active Substance: LEVETIRACETAM
     Dosage: 250 MILLIGRAM, QD
     Route: 048
  26. TELMISARTAN [Concomitant]
     Active Substance: TELMISARTAN
     Indication: Hypertension
     Dosage: 80 MILLIGRAM, QD
     Route: 048
  27. BENIDIPINE HYDROCHLORIDE [Concomitant]
     Active Substance: BENIDIPINE HYDROCHLORIDE
     Indication: Hypertension
     Dosage: 4 MILLIGRAM, QD
     Route: 048
  28. BISOPROLOL FUMARATE [Concomitant]
     Active Substance: BISOPROLOL FUMARATE
     Indication: Hypertension
     Dosage: 2.5 MILLIGRAM, QD
     Route: 048
  29. AMLODIPINE BESYLATE [Concomitant]
     Active Substance: AMLODIPINE BESYLATE
     Indication: Hypertension
     Dosage: 2.5 MILLIGRAM, QD
     Route: 048
  30. LANTHANUM CARBONATE [Concomitant]
     Active Substance: LANTHANUM CARBONATE
     Dosage: 500 MILLIGRAM, TID
     Route: 048
  31. VONOPRAZAN FUMARATE [Concomitant]
     Active Substance: VONOPRAZAN FUMARATE
     Dosage: 20 MILLIGRAM, QD
     Route: 048
  32. SODIUM FERROUS CITRATE [Concomitant]
     Active Substance: SODIUM FERROUS CITRATE
     Dosage: 50 MILLIGRAM, BID
     Route: 048
  33. POLAPREZINC [Concomitant]
     Active Substance: POLAPREZINC
     Dosage: 150 MILLIGRAM, BID
     Route: 048

REACTIONS (16)
  - Vascular pseudoaneurysm [Recovering/Resolving]
  - Skin cancer [Recovered/Resolved]
  - Cerebral infarction [Recovered/Resolved]
  - Shunt infection [Unknown]
  - Pleural effusion [Recovering/Resolving]
  - Activated partial thromboplastin time prolonged [Unknown]
  - Mediastinal haematoma [Recovered/Resolved with Sequelae]
  - Haemothorax [Recovered/Resolved with Sequelae]
  - Arterial haemorrhage [Recovered/Resolved with Sequelae]
  - Haemobilia [Recovering/Resolving]
  - Staphylococcal bacteraemia [Recovering/Resolving]
  - Cholangitis [Recovered/Resolved]
  - Platelet count decreased [Recovered/Resolved]
  - Dyslalia [Recovered/Resolved]
  - Activated partial thromboplastin time prolonged [Recovered/Resolved]
  - Bile duct stone [Recovered/Resolved]

NARRATIVE: CASE EVENT DATE: 20200929
